FAERS Safety Report 4724965-3 (Version None)
Quarter: 2005Q3

REPORT INFORMATION
  Report Type: 
  Country: None (occurrence: None)
  Receive Date: 20050726
  Receipt Date: 20050712
  Transmission Date: 20060218
  Serious: Yes (Other)
  Sender: FDA-Public Use
  Company Number: BE-ROCHE-411050

PATIENT
  Age: 42 Year
  Sex: Male

DRUGS (3)
  1. PEGASYS [Suspect]
     Route: 058
  2. COPEGUS [Suspect]
     Route: 048
     Dates: end: 20050615
  3. COPEGUS [Suspect]
     Route: 048
     Dates: start: 20050615, end: 20050615

REACTIONS (1)
  - ANAEMIA MACROCYTIC [None]
